FAERS Safety Report 5740061-0 (Version None)
Quarter: 2008Q2

REPORT INFORMATION
  Report Type: 
  Country: None (occurrence: None)
  Receive Date: 20080516
  Receipt Date: 20080514
  Transmission Date: 20081010
  Serious: Yes (Other)
  Sender: FDA-Public Use
  Company Number: PHEH2008US04282

PATIENT
  Sex: Female

DRUGS (1)
  1. ZADITOR [Suspect]
     Indication: EYE IRRITATION
     Dosage: UNK, TID
     Route: 031

REACTIONS (2)
  - CATARACT OPERATION [None]
  - RASH [None]
